FAERS Safety Report 15678901 (Version 1)
Quarter: 2018Q4

REPORT INFORMATION
  Report Type: Spontaneous
  Country: HR (occurrence: HR)
  Receive Date: 20181202
  Receipt Date: 20181202
  Transmission Date: 20190205
  Serious: Yes (Hospitalization)
  Sender: FDA-Public Use
  Company Number: HR-009507513-1811HRV012222

PATIENT
  Age: 9 Month
  Sex: Male
  Weight: 8.24 kg

DRUGS (1)
  1. SINGULAIR MINI 4 MG ORALNE GRANULES [Suspect]
     Active Substance: MONTELUKAST SODIUM
     Indication: BRONCHITIS
     Dosage: 4 MILLIGRAM, QD
     Route: 048
     Dates: start: 20181017, end: 20181026

REACTIONS (1)
  - Myoclonus [Recovered/Resolved]

NARRATIVE: CASE EVENT DATE: 20181025
